FAERS Safety Report 17313635 (Version 4)
Quarter: 2020Q3

REPORT INFORMATION
  Report Type: Other
  Country: BR (occurrence: BR)
  Receive Date: 20200124
  Receipt Date: 20200717
  Transmission Date: 20201102
  Serious: Yes (Other)
  Sender: FDA-Public Use
  Company Number: BR-ROCHE-2465564

PATIENT
  Age: 32 Year
  Sex: Female

DRUGS (2)
  1. XOLAIR [Suspect]
     Active Substance: OMALIZUMAB
     Indication: URTICARIA
     Route: 065
     Dates: start: 20191002
  2. XOLAIR [Suspect]
     Active Substance: OMALIZUMAB
     Route: 065
     Dates: start: 20200203

REACTIONS (16)
  - Pain in extremity [Recovered/Resolved]
  - Skin discolouration [Not Recovered/Not Resolved]
  - Mass [Not Recovered/Not Resolved]
  - Insomnia [Unknown]
  - Peripheral swelling [Unknown]
  - Pruritus [Not Recovered/Not Resolved]
  - Alopecia [Recovered/Resolved]
  - Angioedema [Unknown]
  - Drug ineffective [Unknown]
  - Paraesthesia [Unknown]
  - Application site pain [Recovered/Resolved]
  - Product dose omission issue [Unknown]
  - Rash macular [Not Recovered/Not Resolved]
  - Wound [Not Recovered/Not Resolved]
  - Feeling abnormal [Not Recovered/Not Resolved]
  - Pain in extremity [Not Recovered/Not Resolved]

NARRATIVE: CASE EVENT DATE: 20191002
